FAERS Safety Report 15504330 (Version 16)
Quarter: 2025Q1

REPORT INFORMATION
  Report Type: Report from Study
  Country: CA (occurrence: CA)
  Receive Date: 20181016
  Receipt Date: 20250204
  Transmission Date: 20250409
  Serious: Yes (Other)
  Sender: TAKEDA
  Company Number: CA-TAKEDA-2017TUS018925

PATIENT
  Age: 71 Year
  Sex: Female

DRUGS (25)
  1. VEDOLIZUMAB [Suspect]
     Active Substance: VEDOLIZUMAB
     Indication: Crohn^s disease
  2. VEDOLIZUMAB [Suspect]
     Active Substance: VEDOLIZUMAB
  3. VEDOLIZUMAB [Suspect]
     Active Substance: VEDOLIZUMAB
  4. VEDOLIZUMAB [Suspect]
     Active Substance: VEDOLIZUMAB
  5. VEDOLIZUMAB [Suspect]
     Active Substance: VEDOLIZUMAB
  6. VEDOLIZUMAB [Suspect]
     Active Substance: VEDOLIZUMAB
  7. VEDOLIZUMAB [Suspect]
     Active Substance: VEDOLIZUMAB
  8. VEDOLIZUMAB [Suspect]
     Active Substance: VEDOLIZUMAB
  9. VEDOLIZUMAB [Suspect]
     Active Substance: VEDOLIZUMAB
  10. VEDOLIZUMAB [Suspect]
     Active Substance: VEDOLIZUMAB
  11. VEDOLIZUMAB [Suspect]
     Active Substance: VEDOLIZUMAB
  12. VEDOLIZUMAB [Suspect]
     Active Substance: VEDOLIZUMAB
  13. VEDOLIZUMAB [Suspect]
     Active Substance: VEDOLIZUMAB
  14. VEDOLIZUMAB [Suspect]
     Active Substance: VEDOLIZUMAB
  15. VEDOLIZUMAB [Suspect]
     Active Substance: VEDOLIZUMAB
  16. PANTOPRAZOLE SODIUM [Suspect]
     Active Substance: PANTOPRAZOLE SODIUM
     Indication: Product used for unknown indication
  17. AMITRIPTYLINE [Concomitant]
     Active Substance: AMITRIPTYLINE
     Dosage: UNK UNK, QD
  18. LIPITOR [Concomitant]
     Active Substance: ATORVASTATIN CALCIUM
  19. MELOXICAM [Concomitant]
     Active Substance: MELOXICAM
  20. ASPIRIN [Concomitant]
     Active Substance: ASPIRIN
  21. VITAMIN B12 [Concomitant]
     Active Substance: CYANOCOBALAMIN
  22. IRON [Concomitant]
     Active Substance: IRON
  23. VITAMINS [Concomitant]
     Active Substance: VITAMINS
     Dosage: UNK UNK, QD
  24. VITAMIN D [Concomitant]
     Active Substance: VITAMIN D NOS
  25. PERINDOPRIL [Concomitant]
     Active Substance: PERINDOPRIL

REACTIONS (3)
  - Carpal tunnel syndrome [Not Recovered/Not Resolved]
  - Product dose omission issue [Unknown]
  - Hypertension [Unknown]

NARRATIVE: CASE EVENT DATE: 20170701
